FAERS Safety Report 5888027-4 (Version None)
Quarter: 2008Q3

REPORT INFORMATION
  Report Type: 
  Country: None (occurrence: None)
  Receive Date: 20080918
  Receipt Date: 20080918
  Transmission Date: 20090109
  Serious: Yes (Hospitalization)
  Sender: FDA-Public Use
  Company Number: A0748083A

PATIENT
  Age: 33 Year
  Sex: Female

DRUGS (1)
  1. ALLI [Suspect]
     Dates: start: 20080501

REACTIONS (13)
  - BLOOD MAGNESIUM DECREASED [None]
  - BLOOD POTASSIUM DECREASED [None]
  - BLOOD PRESSURE INCREASED [None]
  - COMA [None]
  - CONFUSIONAL STATE [None]
  - CONVULSION [None]
  - DEHYDRATION [None]
  - DIARRHOEA [None]
  - DYSKINESIA [None]
  - MALNUTRITION [None]
  - MUSCLE SPASMS [None]
  - STEATORRHOEA [None]
  - WEIGHT DECREASED [None]
